FAERS Safety Report 4498089-7 (Version None)
Quarter: 2004Q3

REPORT INFORMATION
  Report Type: 
  Country: None (occurrence: None)
  Receive Date: 20040927
  Receipt Date: 20040727
  Transmission Date: 20050211
  Serious: No
  Sender: FDA-Public Use
  Company Number: USA040773810

PATIENT
  Age: 4 Year
  Sex: Female

DRUGS (1)
  1. STRATTERA [Suspect]
     Dosage: 5 MG DAY

REACTIONS (2)
  - APPETITE DISORDER [None]
  - IRRITABILITY [None]
